FAERS Safety Report 5356596-9 (Version None)
Quarter: 2007Q2

REPORT INFORMATION
  Report Type: 
  Country: None (occurrence: None)
  Receive Date: 20070614
  Receipt Date: 20070605
  Transmission Date: 20071010
  Serious: Yes (Hospitalization)
  Sender: FDA-Public Use
  Company Number: PHEH2007US08323

PATIENT
  Age: 50 Year
  Sex: Female

DRUGS (2)
  1. ZELNORM [Suspect]
     Indication: IRRITABLE BOWEL SYNDROME
     Dosage: 6 MG, BID
     Dates: start: 20051101, end: 20051226
  2. ZELNORM [Suspect]
     Dosage: 6 MG, BID
     Dates: start: 20061101, end: 20070330

REACTIONS (1)
  - PALPITATIONS [None]
